FAERS Safety Report 8301680-0 (Version None)
Quarter: 2012Q2

REPORT INFORMATION
  Report Type: 
  Country: None (occurrence: None)
  Receive Date: 20120420
  Receipt Date: 20120413
  Transmission Date: 20120825
  Serious: Yes (Other)
  Sender: FDA-Public Use
  Company Number: CA-JNJFOC-20120402624

PATIENT
  Sex: Female
  Weight: 62 kg

DRUGS (2)
  1. USTEKINUMAB [Suspect]
     Indication: PSORIASIS
     Route: 058
     Dates: start: 20100412, end: 20100412
  2. ALEFACEPT [Suspect]
     Indication: PSORIASIS
     Dates: start: 20100701

REACTIONS (2)
  - MYCOSIS FUNGOIDES [None]
  - DRUG INEFFECTIVE [None]
